FAERS Safety Report 22114899 (Version 2)
Quarter: 2023Q1

REPORT INFORMATION
  Report Type: Report from Study
  Country: ZA (occurrence: ZA)
  Receive Date: 20230320
  Receipt Date: 20230327
  Transmission Date: 20230418
  Serious: Yes (Death, Life-Threatening, Hospitalization, Other)
  Sender: FDA-Public Use
  Company Number: ZA-002147023-NVSC2021ZA254311

PATIENT
  Age: 69 Year
  Sex: Female
  Weight: 99 kg

DRUGS (2)
  1. CAPMATINIB [Suspect]
     Active Substance: CAPMATINIB
     Indication: Non-small cell lung cancer
     Dosage: 400 MG, BID
     Route: 048
     Dates: start: 20210803, end: 20210831
  2. CAPMATINIB [Suspect]
     Active Substance: CAPMATINIB
     Dosage: UNK
     Route: 065
     Dates: start: 20210901, end: 20211104

REACTIONS (10)
  - Death [Fatal]
  - Pneumonitis [Recovering/Resolving]
  - Dyspnoea [Unknown]
  - Pleural effusion [Unknown]
  - Pulmonary embolism [Unknown]
  - Non-small cell lung cancer [Unknown]
  - Malignant neoplasm progression [Unknown]
  - Metastases to lymph nodes [Unknown]
  - Metastases to pleura [Unknown]
  - Metastases to bone [Unknown]

NARRATIVE: CASE EVENT DATE: 20210830
